FAERS Safety Report 9253055 (Version 1)
Quarter: 2013Q2

REPORT INFORMATION
  Report Type: Other
  Country: GB (occurrence: GB)
  Receive Date: 20130424
  Receipt Date: 20130424
  Transmission Date: 20140414
  Serious: Yes (Death, Other)
  Sender: FDA-Public Use
  Company Number: GB-OPTIMER-20130123

PATIENT
  Age: 73 Year
  Sex: Female

DRUGS (6)
  1. DIFICLIR [Suspect]
     Indication: CLOSTRIDIAL INFECTION
     Dosage: 200 MG, BID
     Route: 048
     Dates: start: 20130319, end: 20130324
  2. CALCEOS [Concomitant]
     Indication: SUPPLEMENTATION THERAPY
     Dosage: 1 DF, BID
     Route: 048
     Dates: end: 20130324
  3. CREON [Concomitant]
     Indication: PANCREATITIS
     Dosage: 40000 IU, QID
     Route: 048
     Dates: end: 20130324
  4. DIGOXIN [Concomitant]
     Indication: ATRIAL FIBRILLATION
     Dosage: 125 ?G, QD
     Route: 048
     Dates: end: 20130324
  5. ESCITALOPRAM [Concomitant]
     Indication: DEPRESSION
     Dosage: 10 MG, QD
     Route: 048
     Dates: end: 20130324
  6. RANITIDINE [Concomitant]
     Dosage: 150 MG, BID
     Route: 048
     Dates: start: 20130319, end: 20130324

REACTIONS (3)
  - Acute myocardial infarction [Fatal]
  - Pancreatitis necrotising [Not Recovered/Not Resolved]
  - Pancreatitis [Not Recovered/Not Resolved]
